FAERS Safety Report 8746917 (Version 2)
Quarter: 2013Q3

REPORT INFORMATION
  Report Type: Report from Study
  Country: MX (occurrence: MX)
  Receive Date: 20120827
  Receipt Date: 20130827
  Transmission Date: 20140515
  Serious: Yes (Other)
  Sender: FDA-Public Use
  Company Number: PHHY2012MX073752

PATIENT
  Age: 81 Year
  Sex: Male

DRUGS (5)
  1. ACLASTA [Suspect]
     Indication: OSTEOPOROSIS
     Dosage: 1 APPLICATION (5 MG / 100 ML) EACH YEAR
     Route: 042
     Dates: start: 2008
  2. ACLASTA [Suspect]
     Dosage: 1 APPLICATION (5 MG / 100 ML) EACH YEAR
     Route: 042
  3. ACLASTA [Suspect]
     Dosage: 1 APPLICATION (5 MG / 100 ML) EACH YEAR
     Route: 042
  4. ACLASTA [Suspect]
     Dosage: 1 APPLICATION (5 MG / 100 ML) EACH YEAR
     Route: 042
  5. ACLASTA [Suspect]
     Dosage: 1 APPLICATION (5 MG / 100 ML) EACH YEAR
     Route: 042

REACTIONS (1)
  - Angina pectoris [Recovered/Resolved with Sequelae]
